FAERS Safety Report 8144578-3 (Version None)
Quarter: 2012Q1

REPORT INFORMATION
  Report Type: 
  Country: None (occurrence: None)
  Receive Date: 20120103
  Receipt Date: 20110930
  Transmission Date: 20120608
  Serious: No
  Sender: FDA-Public Use
  Company Number: AE-2011-001759

PATIENT
  Age: 60 Year
  Sex: Male
  Weight: 88.4514 kg

DRUGS (3)
  1. PEGINTERFERON (PEGINTERFERON ALFA-2A) [Concomitant]
  2. RIBASPHERE [Concomitant]
  3. INCIVEK [Suspect]
     Dosage: 2250 MG (750 MG, 1 IN 8 HR), ORAL
     Route: 048
     Dates: start: 20110819

REACTIONS (2)
  - NAUSEA [None]
  - VOMITING [None]
